FAERS Safety Report 22625639 (Version 5)
Quarter: 2024Q4

REPORT INFORMATION
  Report Type: Spontaneous
  Country: US (occurrence: US)
  Receive Date: 20230621
  Receipt Date: 20241216
  Transmission Date: 20250115
  Serious: Yes (Other)
  Sender: PFIZER
  Company Number: US-PFIZER INC-PV202300105777

PATIENT
  Age: 65 Year
  Sex: Female
  Weight: 90.8 kg

DRUGS (38)
  1. IBRANCE [Suspect]
     Active Substance: PALBOCICLIB
     Indication: Breast cancer metastatic
     Dosage: 125 MG, CYCLIC [DAILY FOR 21 DAYS THEN 7 DAYS OFF]
     Route: 048
     Dates: start: 20220707
  2. IBRANCE [Suspect]
     Active Substance: PALBOCICLIB
     Indication: Lymphoedema
     Dosage: 125 MG, CYCLIC, [ONCE DAILY FOR 21 DAYS ON 7 DAY BREAK]/STARTED CYCLE 1
     Route: 048
     Dates: start: 20220822, end: 20220919
  3. IBRANCE [Suspect]
     Active Substance: PALBOCICLIB
     Dosage: 125 MG, CYCLIC, [ONCE DAILY FOR 21 DAYS ON 7 DAY BREAK]/STARTED CYCLE 2
     Route: 048
     Dates: start: 20220926
  4. IBRANCE [Suspect]
     Active Substance: PALBOCICLIB
     Dosage: 1 TAB DAILY FOR 21 DAYS THEN 7 DAYS OFF, REPEAT EVERY 28 DAYS, STARTED CYCLE 3
     Route: 048
     Dates: start: 20221024, end: 20221111
  5. IBRANCE [Suspect]
     Active Substance: PALBOCICLIB
     Dosage: 1 TAB DAILY FOR 21 DAYS THEN 7 DAYS OFF, REPEAT EVERY 28 DAYS, STARTED CYCLE 4
     Route: 048
     Dates: start: 20221121
  6. IBRANCE [Suspect]
     Active Substance: PALBOCICLIB
     Dosage: 1 TAB DAILY FOR 21 DAYS THEN 7 DAYS OFF, REPEAT EVERY 28 DAYS, STARTED CYCLE 5
     Route: 048
     Dates: start: 20221219
  7. IBRANCE [Suspect]
     Active Substance: PALBOCICLIB
     Dosage: 1 TAB DAILY FOR 21 DAYS THEN 7 DAYS OFF, REPEAT EVERY 28 DAYS, STARTED CYCLE 6
     Route: 048
     Dates: start: 20230116
  8. IBRANCE [Suspect]
     Active Substance: PALBOCICLIB
     Dosage: 1 TAB DAILY FOR 21 DAYS THEN 7 DAYS OFF, REPEAT EVERY 28 DAYS, STARTED CYCLE 7
     Route: 048
     Dates: start: 20230213
  9. IBRANCE [Suspect]
     Active Substance: PALBOCICLIB
     Dosage: 1 TAB DAILY FOR 21 DAYS THEN 7 DAYS OFF, REPEAT EVERY 28 DAYS, STARTED CYCLE 8
     Route: 048
     Dates: start: 20230313
  10. IBRANCE [Suspect]
     Active Substance: PALBOCICLIB
     Dosage: 1 TAB DAILY FOR 21 DAYS THEN 7 DAYS OFF, REPEAT EVERY 28 DAYS, STARTED CYCLE 9
     Route: 048
     Dates: start: 20230410
  11. IBRANCE [Suspect]
     Active Substance: PALBOCICLIB
     Dosage: 1 TAB DAILY FOR 21 DAYS THEN 7 DAYS OFF, REPEAT EVERY 28 DAYS, STARTED CYCLE 10
     Route: 048
     Dates: start: 20230515
  12. IBRANCE [Suspect]
     Active Substance: PALBOCICLIB
     Dosage: 1 TAB DAILY FOR 21 DAYS THEN 7 DAYS OFF, REPEAT EVERY 28 DAYS, STARTED CYCLE 11
     Route: 048
     Dates: start: 20230612
  13. IBRANCE [Suspect]
     Active Substance: PALBOCICLIB
     Dosage: 1 TAB DAILY FOR 21 DAYS THEN 7 DAYS OFF, REPEAT EVERY 28 DAYS, STARTED CYCLE 12
     Route: 048
     Dates: start: 20230710
  14. IBRANCE [Suspect]
     Active Substance: PALBOCICLIB
     Dosage: 1 TAB DAILY FOR 21 DAYS THEN 7 DAYS OFF, REPEAT EVERY 28 DAYS, STARTED CYCLE 13
     Route: 048
     Dates: start: 20230807
  15. IBRANCE [Suspect]
     Active Substance: PALBOCICLIB
     Dosage: 1 TAB DAILY FOR 21 DAYS THEN 7 DAYS OFF, REPEAT EVERY 28 DAYS, STARTED CYCLE 14
     Route: 048
     Dates: start: 20230904
  16. IBRANCE [Suspect]
     Active Substance: PALBOCICLIB
     Dosage: 1 TAB DAILY FOR 21 DAYS THEN 7 DAYS OFF, REPEAT EVERY 28 DAYS, STARTED CYCLE 15
     Route: 048
     Dates: start: 20231002
  17. IBRANCE [Suspect]
     Active Substance: PALBOCICLIB
     Dosage: 1 TAB DAILY FOR 21 DAYS THEN 7 DAYS OFF, REPEAT EVERY 28 DAYS, STARTED CYCLE 16
     Route: 048
     Dates: start: 20231030
  18. IBRANCE [Suspect]
     Active Substance: PALBOCICLIB
     Dosage: 1 TAB DAILY FOR 21 DAYS THEN 7 DAYS OFF, REPEAT EVERY 28 DAYS, STARTED CYCLE 17
     Route: 048
     Dates: start: 20231204
  19. IBRANCE [Suspect]
     Active Substance: PALBOCICLIB
     Dosage: 1 TAB DAILY FOR 21 DAYS THEN 7 DAYS OFF, REPEAT EVERY 28 DAYS, STARTED CYCLE 18
     Route: 048
     Dates: start: 20240101
  20. IBRANCE [Suspect]
     Active Substance: PALBOCICLIB
     Dosage: 1 TAB DAILY FOR 21 DAYS THEN 7 DAYS OFF, REPEAT EVERY 28 DAYS, STARTED CYCLE 19
     Route: 048
     Dates: start: 20240129
  21. IBRANCE [Suspect]
     Active Substance: PALBOCICLIB
     Dosage: 1 TAB DAILY FOR 21 DAYS THEN 7 DAYS OFF, REPEAT EVERY 28 DAYS, STARTED CYCLE 20
     Route: 048
     Dates: start: 20240226
  22. IBRANCE [Suspect]
     Active Substance: PALBOCICLIB
     Dosage: 1 TAB DAILY FOR 21 DAYS THEN 7 DAYS OFF, REPEAT EVERY 28 DAYS, CYCLE 21
     Route: 048
     Dates: start: 20240325
  23. IBRANCE [Suspect]
     Active Substance: PALBOCICLIB
     Dosage: 1 TAB DAILY FOR 21 DAYS THEN 7 DAYS OFF, REPEAT EVERY 28 DAYS, CYCLE 22
     Route: 048
     Dates: start: 20240415
  24. IBRANCE [Suspect]
     Active Substance: PALBOCICLIB
     Dosage: 1 TAB DAILY FOR 21 DAYS THEN 7 DAYS OFF, REPEAT EVERY 28 DAYS, CYCLE 23
     Route: 048
     Dates: start: 20240520
  25. IBRANCE [Suspect]
     Active Substance: PALBOCICLIB
     Dosage: 1 TAB DAILY FOR 21 DAYS THEN 7 DAYS OFF, REPEAT EVERY 28 DAYS, CYCLE 24
     Route: 048
     Dates: start: 20240617
  26. IBRANCE [Suspect]
     Active Substance: PALBOCICLIB
     Dosage: 1 TAB DAILY FOR 21 DAYS THEN 7 DAYS OFF, REPEAT EVERY 28 DAYS, CYCLE 25
     Route: 048
     Dates: start: 20240715
  27. IBRANCE [Suspect]
     Active Substance: PALBOCICLIB
     Dosage: 1 TAB DAILY FOR 21 DAYS THEN 7 DAYS OFF, REPEAT EVERY 28 DAYS, CYCLE 26
     Route: 048
     Dates: start: 20240916
  28. IBRANCE [Suspect]
     Active Substance: PALBOCICLIB
     Dosage: 1 TAB DAILY FOR 21 DAYS THEN 7 DAYS OFF, REPEAT EVERY 28 DAYS, CYCLE 27
     Route: 048
     Dates: start: 20241014
  29. IBRANCE [Suspect]
     Active Substance: PALBOCICLIB
     Dosage: 1 TAB DAILY FOR 21 DAYS THEN 7 DAYS OFF, REPEAT EVERY 28 DAYS, CYCLE 28
     Route: 048
     Dates: start: 20241125
  30. ALENDRONATE [Concomitant]
     Active Substance: ALENDRONATE SODIUM
     Indication: Hormone therapy
     Dosage: 1 MG, DAILY
     Dates: start: 20230707
  31. ALENDRONATE [Concomitant]
     Active Substance: ALENDRONATE SODIUM
     Indication: Breast cancer
  32. ANASTROZOLE [Concomitant]
     Active Substance: ANASTROZOLE
     Indication: Hormone therapy
     Dosage: 1 MG, DAILY
     Dates: start: 20230707
  33. ANASTROZOLE [Concomitant]
     Active Substance: ANASTROZOLE
     Indication: Breast cancer
     Dosage: UNK
  34. HYDROCHLOROTHIAZIDE [Concomitant]
     Active Substance: HYDROCHLOROTHIAZIDE
     Indication: Hypertension
     Dosage: UNK
  35. INSULIN NOS [Concomitant]
     Active Substance: INSULIN NOS
     Dosage: UNK
  36. METFORMIN [Concomitant]
     Active Substance: METFORMIN HYDROCHLORIDE
     Dosage: UNK
  37. OLMESARTAN [Concomitant]
     Active Substance: OLMESARTAN
     Dosage: UNK
  38. POTASSIUM [Concomitant]
     Active Substance: POTASSIUM
     Dosage: UNK

REACTIONS (2)
  - Neutropenia [Not Recovered/Not Resolved]
  - Cataract [Unknown]

NARRATIVE: CASE EVENT DATE: 20230612
